FAERS Safety Report 26017720 (Version 1)
Quarter: 2025Q4

REPORT INFORMATION
  Report Type: Spontaneous
  Country: US (occurrence: US)
  Receive Date: 20251110
  Receipt Date: 20251110
  Transmission Date: 20260119
  Serious: Yes (Other)
  Sender: ABBVIE
  Company Number: US-ABBVIE-6536457

PATIENT
  Sex: Female

DRUGS (1)
  1. BYSTOLIC [Suspect]
     Active Substance: NEBIVOLOL HYDROCHLORIDE
     Indication: Atrial fibrillation
     Route: 048
     Dates: start: 2007

REACTIONS (4)
  - Macular degeneration [Unknown]
  - Atrial fibrillation [Unknown]
  - Off label use [Unknown]
  - Off label use [Unknown]
